FAERS Safety Report 6013567-7 (Version None)
Quarter: 2008Q4

REPORT INFORMATION
  Report Type: 
  Country: None (occurrence: None)
  Receive Date: 20081218
  Receipt Date: 20081218
  Transmission Date: 20090506
  Serious: No
  Sender: FDA-Public Use
  Company Number: None

PATIENT
  Sex: Female
  Weight: 62.2 kg

DRUGS (1)
  1. CISPLATIN [Suspect]
     Dosage: 66 MG
     Dates: end: 20081110

REACTIONS (1)
  - DEEP VEIN THROMBOSIS [None]
